FAERS Safety Report 6611984-5 (Version None)
Quarter: 2010Q1

REPORT INFORMATION
  Report Type: 
  Country: None (occurrence: None)
  Receive Date: 20100225
  Receipt Date: 20100216
  Transmission Date: 20100710
  Serious: Yes (Hospitalization, Other)
  Sender: FDA-Public Use
  Company Number: 2009SP037639

PATIENT
  Age: 41 Year
  Sex: Female
  Weight: 82.5547 kg

DRUGS (1)
  1. IMPLANON [Suspect]
     Indication: DRUG USE FOR UNKNOWN INDICATION
     Dates: start: 20070723, end: 20091117

REACTIONS (3)
  - ABDOMINAL PAIN LOWER [None]
  - BREAST CANCER IN SITU [None]
  - OVARIAN CYST [None]
